FAERS Safety Report 25394406 (Version 1)
Quarter: 2025Q2

REPORT INFORMATION
  Report Type: Spontaneous
  Country: US (occurrence: US)
  Receive Date: 20250604
  Receipt Date: 20250604
  Transmission Date: 20250716
  Serious: No
  Sender: ROCHE
  Company Number: US-ROCHE-10000279667

PATIENT
  Age: 47 Year
  Sex: Female

DRUGS (2)
  1. ITOVEBI [Suspect]
     Active Substance: INAVOLISIB
     Indication: Breast cancer
     Route: 048
     Dates: start: 20250311
  2. IBRANCE [Suspect]
     Active Substance: PALBOCICLIB
     Indication: Breast cancer
     Route: 048
     Dates: start: 20250228

REACTIONS (9)
  - Hyperglycaemia [Unknown]
  - Hypertension [Unknown]
  - Diabetes mellitus [Unknown]
  - Appetite disorder [Unknown]
  - Stomatitis [Unknown]
  - Dry mouth [Unknown]
  - Glossodynia [Unknown]
  - Postmenopause [Unknown]
  - Diarrhoea [Unknown]
